FAERS Safety Report 5502329-2 (Version None)
Quarter: 2007Q4

REPORT INFORMATION
  Report Type: 
  Country: None (occurrence: None)
  Receive Date: 20071030
  Receipt Date: 20071022
  Transmission Date: 20080405
  Serious: Yes (Other)
  Sender: FDA-Public Use
  Company Number: US-PFIZER INC-2007089021

PATIENT
  Sex: Female

DRUGS (1)
  1. DEPO-PROVERA SUSPENSION/INJ [Suspect]

REACTIONS (6)
  - ABORTION SPONTANEOUS [None]
  - BONE PAIN [None]
  - DYSPNOEA [None]
  - IRRITABILITY [None]
  - METRORRHAGIA [None]
  - MIGRAINE [None]
